FAERS Safety Report 16951150 (Version 1)
Quarter: 2019Q4

REPORT INFORMATION
  Report Type: Spontaneous
  Country: US (occurrence: US)
  Receive Date: 20190903
  Receipt Date: 20190903
  Transmission Date: 20200122
  Serious: Yes (Hospitalization)
  Sender: FDA-Public Use
  Company Number: None

PATIENT
  Age: 57 Year
  Sex: Female

DRUGS (12)
  1. ALIGN [Concomitant]
     Active Substance: BIFIDOBACTERIUM LONGUM SUBSP. INFANTIS
  2. SIMPONI [Suspect]
     Active Substance: GOLIMUMAB
     Indication: RHEUMATOID ARTHRITIS
     Route: 058
     Dates: start: 20160107
  3. MULTIMEGA MINERALS [Concomitant]
  4. CALTRATE [Concomitant]
     Active Substance: CALCIUM CARBONATE
  5. KETOPROFEN. [Concomitant]
     Active Substance: KETOPROFEN
  6. METHOTREXATE. [Concomitant]
     Active Substance: METHOTREXATE
  7. RANITIDINE. [Concomitant]
     Active Substance: RANITIDINE
  8. ZANTAC [Concomitant]
     Active Substance: RANITIDINE HYDROCHLORIDE
  9. CEPHALEXIN. [Concomitant]
     Active Substance: CEPHALEXIN
  10. FLAX OIL [Concomitant]
  11. FOLIC ACID. [Concomitant]
     Active Substance: FOLIC ACID
  12. RESTASIS [Concomitant]
     Active Substance: CYCLOSPORINE

REACTIONS (3)
  - Accident [None]
  - Loss of personal independence in daily activities [None]
  - Rheumatoid arthritis [None]

NARRATIVE: CASE EVENT DATE: 201908
